FAERS Safety Report 20830943 (Version 1)
Quarter: 2022Q2

REPORT INFORMATION
  Report Type: Spontaneous
  Country: FR (occurrence: FR)
  Receive Date: 20220515
  Receipt Date: 20220515
  Transmission Date: 20220721
  Serious: Yes (Death, Life-Threatening, Other)
  Sender: FDA-Public Use
  Company Number: FR-AMGEN-FRASP2022081735

PATIENT

DRUGS (2)
  1. BLINATUMOMAB [Suspect]
     Active Substance: BLINATUMOMAB
     Indication: Acute lymphocytic leukaemia
     Dosage: UNK
     Route: 065
  2. FILGRASTIM [Suspect]
     Active Substance: FILGRASTIM
     Indication: Prophylaxis
     Route: 065

REACTIONS (12)
  - Death [Fatal]
  - Pneumonia [Fatal]
  - Sepsis [Fatal]
  - Febrile neutropenia [Unknown]
  - Acute lymphocytic leukaemia recurrent [Unknown]
  - Bacteraemia [Unknown]
  - Systemic candida [Unknown]
  - Bronchopulmonary aspergillosis [Unknown]
  - Cytokine release syndrome [Unknown]
  - Immune effector cell-associated neurotoxicity syndrome [Unknown]
  - Minimal residual disease [Unknown]
  - Therapeutic product effect incomplete [Unknown]
